FAERS Safety Report 19219726 (Version 4)
Quarter: 2021Q2

REPORT INFORMATION
  Report Type: Spontaneous
  Country: IT (occurrence: IT)
  Receive Date: 20210506
  Receipt Date: 20210604
  Transmission Date: 20210717
  Serious: Yes (Hospitalization, Other)
  Sender: FDA-Public Use
  Company Number: IT-AUROBINDO-AUR-APL-2021-017446

PATIENT
  Age: 53 Year
  Sex: Female

DRUGS (2)
  1. MEROPENEM AUROBINDO500 MG POWDER FOR SOLUTION FOR INJECTION ORINFUSION [Suspect]
     Active Substance: MEROPENEM
     Indication: ANTIBIOTIC PROPHYLAXIS
     Dosage: UNK
     Route: 065
     Dates: start: 20210325, end: 20210406
  2. MEROPENEM AUROBINDO500 MG POWDER FOR SOLUTION FOR INJECTION ORINFUSION [Suspect]
     Active Substance: MEROPENEM
     Dosage: UNK
     Route: 065

REACTIONS (3)
  - Purpura [Recovering/Resolving]
  - Stevens-Johnson syndrome [Recovering/Resolving]
  - Angioedema [Recovering/Resolving]

NARRATIVE: CASE EVENT DATE: 20210406
